FAERS Safety Report 6096863-7 (Version None)
Quarter: 2009Q1

REPORT INFORMATION
  Report Type: 
  Country: None (occurrence: None)
  Receive Date: 20090225
  Receipt Date: 20090225
  Transmission Date: 20090719
  Serious: No
  Sender: FDA-Public Use
  Company Number: None

PATIENT
  Sex: Female
  Weight: 46.4 kg

DRUGS (2)
  1. CISPLATIN [Suspect]
     Dosage: 22 MG
     Dates: end: 20090223
  2. TAXOL [Suspect]
     Dosage: 60 MG
     Dates: end: 20090223

REACTIONS (1)
  - DEHYDRATION [None]
